FAERS Safety Report 5874397-X (Version None)
Quarter: 2008Q3

REPORT INFORMATION
  Report Type: 
  Country: None (occurrence: None)
  Receive Date: 20080908
  Receipt Date: 20080829
  Transmission Date: 20090109
  Serious: Yes (Other)
  Sender: FDA-Public Use
  Company Number: GB-ABBOTT-08P-167-0473942-00

PATIENT
  Age: 58 Year
  Sex: Female

DRUGS (6)
  1. DEPAKOTE [Suspect]
     Indication: BIPOLAR DISORDER
     Route: 048
     Dates: start: 20080108
  2. CIPRALEX FILM-COATED TABLETS [Suspect]
     Indication: ANXIETY
     Route: 048
     Dates: start: 20080116, end: 20080123
  3. CIPRALEX FILM-COATED TABLETS [Suspect]
     Indication: BIPOLAR DISORDER
  4. MIRTAZAPINE [Suspect]
     Indication: DEPRESSION
     Route: 048
     Dates: start: 19940101
  5. MIRTAZAPINE [Suspect]
     Indication: ANXIETY
  6. LITHIUM CARBONATE [Concomitant]
     Indication: DRUG USE FOR UNKNOWN INDICATION

REACTIONS (2)
  - HEADACHE [None]
  - SUICIDAL IDEATION [None]
